FAERS Safety Report 6539875-9 (Version None)
Quarter: 2010Q1

REPORT INFORMATION
  Report Type: 
  Country: None (occurrence: None)
  Receive Date: 20100113
  Receipt Date: 20090211
  Transmission Date: 20100710
  Serious: Yes (Hospitalization, Other)
  Sender: FDA-Public Use
  Company Number: 2009163294

PATIENT
  Sex: Female

DRUGS (1)
  1. FLUCONAZOLE [Suspect]
     Indication: INFECTION
     Dosage: 150 MG, 1X/DAY, ORAL
     Route: 048

REACTIONS (1)
  - ANAPHYLACTIC REACTION [None]
